FAERS Safety Report 9387798 (Version 2)
Quarter: 2013Q3

REPORT INFORMATION
  Report Type: Spontaneous
  Country: JP (occurrence: None)
  Receive Date: 20130701
  Receipt Date: 20130710
  Transmission Date: 20140515
  Serious: Yes (Death)
  Sender: FDA-Public Use
  Company Number: CLINIGEN-003018

PATIENT
  Age: 64 Year
  Sex: Male

DRUGS (11)
  1. FOSCAVIR [Suspect]
     Indication: MYELODYSPLASTIC SYNDROME
     Dosage: 1
     Route: 041
     Dates: start: 20110726, end: 20110801
  2. PROGRAF [Concomitant]
  3. MEROPENEM [Concomitant]
  4. VANCOMYCIN [Concomitant]
  5. LOXOPROFEN [Concomitant]
  6. PURSENNID /00571902/ [Concomitant]
  7. OXYCONTIN [Concomitant]
  8. FULCALIQ [Concomitant]
  9. GRAN [Concomitant]
  10. PRIMPERAN [Concomitant]
  11. LASIX /00032601 [Concomitant]

REACTIONS (2)
  - Blood creatinine increased [None]
  - Blood urea increased [None]
